FAERS Safety Report 18897312 (Version 2)
Quarter: 2021Q1

REPORT INFORMATION
  Report Type: Report from Study
  Country: JP (occurrence: JP)
  Receive Date: 20210215
  Receipt Date: 20210302
  Transmission Date: 20210420
  Serious: Yes (Death, Life-Threatening, Hospitalization, Other)
  Sender: FDA-Public Use
  Company Number: JP-AMGEN-JPNSP2021023685

PATIENT
  Age: 70 Year
  Sex: Female

DRUGS (99)
  1. DARBEPOETIN ALFA [Suspect]
     Active Substance: DARBEPOETIN ALFA
     Indication: MYELODYSPLASTIC SYNDROME
     Dosage: 120 MICROGRAM
     Route: 042
     Dates: start: 20150526, end: 20150526
  2. DARBEPOETIN ALFA [Suspect]
     Active Substance: DARBEPOETIN ALFA
     Indication: NEPHROGENIC ANAEMIA
     Dosage: 240 MICROGRAM, QWK
     Route: 042
     Dates: start: 20150616, end: 20160620
  3. DARBEPOETIN ALFA [Suspect]
     Active Substance: DARBEPOETIN ALFA
     Dosage: 240 MICROGRAM, QWK
     Route: 042
     Dates: start: 20161222, end: 20170215
  4. FLUTORIA [Concomitant]
     Indication: HYPERTENSION
     Dosage: 1 MG
     Route: 048
  5. CALONAL [Concomitant]
     Active Substance: ACETAMINOPHEN
     Indication: UPPER RESPIRATORY TRACT INFLAMMATION
     Dosage: 2 DF
     Route: 048
     Dates: end: 20170220
  6. TRANEXAMIC ACID. [Concomitant]
     Active Substance: TRANEXAMIC ACID
     Indication: GASTROINTESTINAL HAEMORRHAGE
     Dosage: 250 MG
     Route: 065
     Dates: start: 20161202, end: 20161205
  7. CARBAZOCHROME SULFONATE NA [Concomitant]
     Dosage: 30 MG, TID
     Route: 048
  8. TAKECAB [Concomitant]
     Active Substance: VONOPRAZAN FUMARATE
     Indication: GASTRIC ULCER
     Dosage: 20 MG, QD
     Route: 048
  9. KIKLIN [Concomitant]
     Active Substance: BIXALOMER
     Indication: HYPERPHOSPHATAEMIA
     Dosage: 750 MG
     Route: 048
     Dates: end: 20170927
  10. TOYOFAROL [Concomitant]
     Active Substance: ALFACALCIDOL
     Dosage: 1 DF
     Route: 048
  11. PLEVITA S [Concomitant]
     Dosage: 5 ML
     Route: 065
  12. HUMULIN R [Concomitant]
     Active Substance: INSULIN HUMAN
     Dosage: 10 IU
     Route: 065
  13. DARBEPOETIN ALFA [Suspect]
     Active Substance: DARBEPOETIN ALFA
     Dosage: 240 MICROGRAM, QWK
     Route: 042
     Dates: start: 20161031, end: 20161114
  14. ARGAMATE [Concomitant]
     Active Substance: CALCIUM POLYSTYRENE SULFONATE
     Dosage: 75 G
     Route: 048
  15. RABEPRAZOLE NA [Concomitant]
     Active Substance: RABEPRAZOLE SODIUM
     Indication: GASTRIC ULCER
     Dosage: 20 MG
     Route: 048
     Dates: end: 20170109
  16. MAALOX [ALUMINIUM HYDROXIDE GEL, DRIED;MAGNESIUM TRISILICATE] [Concomitant]
     Active Substance: ALUMINUM HYDROXIDE\MAGNESIUM TRISILICATE
     Indication: GASTRITIS
     Dosage: 3.6 G
     Route: 048
     Dates: end: 20191122
  17. SOLITA?T1 [Concomitant]
     Dosage: 200 ML
     Route: 065
     Dates: start: 20170120, end: 20170120
  18. TAKEPRON [Concomitant]
     Active Substance: LANSOPRAZOLE
     Indication: GASTRIC ULCER
     Dosage: 30 MG
     Route: 065
     Dates: start: 20161202, end: 20161205
  19. CARBAZOCHROME SULFONATE NA [Concomitant]
     Dosage: 25 MG
     Route: 065
     Dates: start: 20161203, end: 20161205
  20. CARBAZOCHROME SULFONATE NA [Concomitant]
     Dosage: 25 MG
     Route: 065
  21. GLUCOSE [Concomitant]
     Active Substance: DEXTROSE
     Indication: DIABETES MELLITUS
     Dosage: 20 ML
     Route: 065
     Dates: start: 20161210, end: 20161210
  22. GLUCOSE [Concomitant]
     Active Substance: DEXTROSE
     Dosage: 500 ML
     Route: 065
  23. MOSAPRIDE [Concomitant]
     Active Substance: MOSAPRIDE
     Indication: GASTRITIS
     Dosage: 15 MG
     Route: 048
  24. FLOMOX [CEFCAPENE PIVOXIL HYDROCHLORIDE] [Concomitant]
     Active Substance: CEFCAPENE PIVOXIL HYDROCHLORIDE
     Dosage: 150 MG
     Route: 048
  25. AMITIZA [Concomitant]
     Active Substance: LUBIPROSTONE
     Indication: CONSTIPATION
     Dosage: 24 UG, QD
     Route: 048
  26. SP TROCHE [Concomitant]
     Active Substance: DEQUALINIUM CHLORIDE
     Dosage: 1.5 MG
     Route: 049
     Dates: end: 20180612
  27. HUMULIN R [Concomitant]
     Active Substance: INSULIN HUMAN
     Dosage: 2 IU
     Route: 065
  28. DARBEPOETIN ALFA [Suspect]
     Active Substance: DARBEPOETIN ALFA
     Dosage: 240 MICROGRAM, QWK
     Route: 042
     Dates: start: 20170724, end: 20171010
  29. INSULIN GLARGINE BS [Concomitant]
     Active Substance: INSULIN GLARGINE
     Indication: DIABETES MELLITUS
     Dosage: 1 DF
     Route: 065
  30. INSULIN GLARGINE BS [Concomitant]
     Active Substance: INSULIN GLARGINE
     Dosage: 3 DF
     Route: 065
  31. EPALRESTAT [Concomitant]
     Active Substance: EPALRESTAT
     Indication: NEUROPATHY PERIPHERAL
     Dosage: 150 MG
     Route: 048
  32. ACARBOSE. [Concomitant]
     Active Substance: ACARBOSE
     Indication: DIABETES MELLITUS
     Dosage: 300 MG
     Route: 048
  33. ACINON [NIZATIDINE] [Concomitant]
     Indication: GASTRITIS
     Dosage: 150 MG
     Route: 048
     Dates: end: 20161121
  34. GLUFAST [Concomitant]
     Active Substance: MITIGLINIDE
     Indication: DIABETES MELLITUS
     Dosage: 10 MG
     Route: 048
     Dates: end: 20161121
  35. PICOSULFATE NA [Concomitant]
     Active Substance: SODIUM PICOSULFATE
     Dosage: 10 ML
     Route: 048
     Dates: end: 20161206
  36. TEPRENONE [Concomitant]
     Active Substance: TEPRENONE
     Indication: GASTRITIS
     Dosage: 1.5 G
     Route: 048
     Dates: end: 20161122
  37. L?CARBOCISTEINE [Concomitant]
     Active Substance: CARBOCYSTEINE
     Indication: UPPER RESPIRATORY TRACT INFLAMMATION
     Dosage: 1500 MG
     Route: 048
     Dates: end: 20170220
  38. SOLITA?T1 [Concomitant]
     Dosage: 500 ML
     Route: 065
     Dates: start: 20161202, end: 20161205
  39. RAPIACTA [Concomitant]
     Active Substance: PERAMIVIR
     Indication: INFLUENZA
     Dosage: 300 MG
     Route: 065
     Dates: start: 20170120, end: 20170120
  40. FAMOTIDINE. [Concomitant]
     Active Substance: FAMOTIDINE
     Indication: GASTRIC ULCER
     Dosage: 20 MG, BID
     Route: 048
  41. HERBAL NOS [Concomitant]
     Active Substance: HERBALS
     Indication: GASTRITIS
     Dosage: 7.5 G
     Route: 048
     Dates: end: 20170626
  42. SOLITA?T3 [Concomitant]
     Active Substance: POTASSIUM CHLORIDE\SODIUM CHLORIDE\SODIUM LACTATE
     Dosage: 500 ML
     Route: 065
  43. HUMULIN R [Concomitant]
     Active Substance: INSULIN HUMAN
     Indication: DIABETES MELLITUS
     Dosage: 8 IU
     Route: 065
  44. DARBEPOETIN ALFA [Suspect]
     Active Substance: DARBEPOETIN ALFA
     Dosage: 240 MICROGRAM, QWK
     Route: 042
     Dates: start: 20161128, end: 20161205
  45. FOSRENOL [Concomitant]
     Active Substance: LANTHANUM CARBONATE
     Indication: HYPERPHOSPHATAEMIA
     Dosage: 500 MG
     Route: 048
  46. ARGAMATE [Concomitant]
     Active Substance: CALCIUM POLYSTYRENE SULFONATE
     Indication: HYPERKALAEMIA
     Dosage: 50 G
     Route: 048
  47. MAGMITT [Concomitant]
     Active Substance: MAGNESIUM OXIDE
     Indication: CONSTIPATION
     Dosage: 990 MG
     Route: 048
  48. TRANSAMIN [Concomitant]
     Active Substance: TRANEXAMIC ACID
     Indication: GASTROINTESTINAL HAEMORRHAGE
     Dosage: 250 MG, TID
     Route: 048
  49. POPIDON [Concomitant]
     Indication: STOMATITIS
     Dosage: 30 ML
     Route: 049
     Dates: end: 20161218
  50. SEISHOKU [Concomitant]
     Active Substance: SODIUM CHLORIDE
     Dosage: 20 ML
     Route: 065
     Dates: start: 20161202, end: 20161205
  51. DARBEPOETIN ALFA [Suspect]
     Active Substance: DARBEPOETIN ALFA
     Dosage: 240 MICROGRAM, QWK
     Route: 042
     Dates: start: 20160628, end: 20160808
  52. DARBEPOETIN ALFA [Suspect]
     Active Substance: DARBEPOETIN ALFA
     Dosage: 240 MICROGRAM, QWK
     Route: 042
     Dates: start: 20160822, end: 20161024
  53. DARBEPOETIN ALFA [Suspect]
     Active Substance: DARBEPOETIN ALFA
     Dosage: 240 MICROGRAM, QWK
     Route: 058
     Dates: start: 20180109, end: 20190730
  54. LOCHOL [FLUVASTATIN SODIUM] [Concomitant]
     Indication: HYPERLIPIDAEMIA
     Dosage: 20 MG
     Route: 048
  55. PICOSULFATE NA [Concomitant]
     Active Substance: SODIUM PICOSULFATE
     Dosage: 20 ML
     Route: 048
     Dates: end: 20180515
  56. PROMAC D [Concomitant]
     Active Substance: POLAPREZINC
     Indication: GASTRIC ULCER
     Dosage: 2 DF
     Route: 048
  57. ODANON [Concomitant]
     Indication: GASTROINTESTINAL HAEMORRHAGE
     Dosage: 90 MG
     Route: 048
  58. GENINAX [Concomitant]
     Active Substance: GARENOXACIN MESYLATE
     Indication: PHARYNGITIS
     Dosage: 200 MG
     Route: 048
     Dates: end: 20170220
  59. SEISHOKU [Concomitant]
     Active Substance: SODIUM CHLORIDE
     Dosage: 20 ML
     Route: 065
  60. TRANEXAMIC ACID. [Concomitant]
     Active Substance: TRANEXAMIC ACID
     Dosage: 250 MG
     Route: 065
     Dates: start: 20161203, end: 20161205
  61. TRANEXAMIC ACID. [Concomitant]
     Active Substance: TRANEXAMIC ACID
     Dosage: 250 MG
     Route: 065
     Dates: start: 20161206, end: 20161206
  62. LUCONAC [Concomitant]
     Indication: TINEA INFECTION
     Dosage: 7 G
     Route: 061
  63. SOLYUGEN G [Concomitant]
     Dosage: 500 ML
     Route: 065
  64. FENELMIN [Concomitant]
     Dosage: 50 MG, BID
     Route: 048
  65. OLMETEC [Concomitant]
     Active Substance: OLMESARTAN MEDOXOMIL
     Indication: HYPERTENSION
     Dosage: 20 MG
     Route: 048
  66. INSULIN GLARGINE BS [Concomitant]
     Active Substance: INSULIN GLARGINE
     Dosage: 2 DF
     Route: 065
  67. VITAMEDIN [BENFOTIAMINE;CYANOCOBALAMIN;PYRIDOXINE HYDROCHLORIDE] [Concomitant]
     Indication: NEUROPATHY PERIPHERAL
     Dosage: 3 DF
     Route: 048
  68. GASMOTIN [Concomitant]
     Active Substance: MOSAPRIDE CITRATE
     Dosage: 15 MG
     Route: 048
     Dates: end: 20161207
  69. SOLITA?T1 [Concomitant]
     Dosage: 500 ML
     Route: 065
  70. CARBAZOCHROME SULFONATE NA [Concomitant]
     Indication: GASTROINTESTINAL HAEMORRHAGE
     Dosage: 25 MG
     Route: 065
     Dates: start: 20161202, end: 20161205
  71. CARBAZOCHROME SULFONATE NA [Concomitant]
     Dosage: 100 MG
     Route: 065
  72. OLMESARTAN OD [Concomitant]
     Active Substance: OLMESARTAN MEDOXOMIL
     Indication: HYPERTENSION
     Dosage: 20 MG
     Route: 048
  73. HUMULIN R [Concomitant]
     Active Substance: INSULIN HUMAN
     Dosage: 4 IU
     Route: 065
  74. SANMEL [Concomitant]
     Active Substance: SODIUM ALGINATE
     Indication: GASTRIC ULCER
     Dosage: 60 ML
     Route: 048
  75. PRONASE [Concomitant]
     Active Substance: PROTEASE
     Dosage: 1 DF
     Route: 048
     Dates: end: 20161115
  76. NIFLEC [Concomitant]
     Active Substance: POLYETHYLENE GLYCOLS\POTASSIUM CHLORIDE\SODIUM BICARBONATE\SODIUM CHLORIDE\SODIUM SULFATE
     Dosage: 1 DF
     Route: 048
     Dates: end: 20161207
  77. ASVERIN (TIPEPIDINE HIBENZATE) [Concomitant]
     Active Substance: TIPEPIDINE HIBENZATE
     Indication: NASOPHARYNGITIS
     Dosage: 60 MG
     Route: 048
     Dates: end: 20170220
  78. SOLITA?T1 [Concomitant]
     Dosage: 500 ML
     Route: 065
     Dates: start: 20170208, end: 20170208
  79. TAKEPRON [Concomitant]
     Active Substance: LANSOPRAZOLE
     Dosage: 30 MG
     Route: 065
  80. TRANEXAMIC ACID. [Concomitant]
     Active Substance: TRANEXAMIC ACID
     Dosage: 250 MG
     Route: 065
  81. VITAMEDIN INTRAVENOUS [Concomitant]
     Active Substance: CYANOCOBALAMIN\PYRIDOXINE HYDROCHLORIDE\THIAMINE
     Indication: VITAMIN SUPPLEMENTATION
     Dosage: 1 DF
     Route: 065
     Dates: start: 20161202, end: 20161205
  82. TRICHLORMETHIAZIDE [Concomitant]
     Active Substance: TRICHLORMETHIAZIDE
     Indication: HYPERTENSION
     Dosage: 1 MG
     Route: 048
     Dates: end: 20180122
  83. NEOLAMIN 3B [Concomitant]
     Dosage: 10 ML
     Route: 065
  84. LACTEC [Concomitant]
     Active Substance: CALCIUM CHLORIDE ANHYDROUS\POTASSIUM CHLORIDE\SODIUM CHLORIDE\SODIUM LACTATE
     Dosage: 500 ML
     Route: 065
  85. DARBEPOETIN ALFA [Suspect]
     Active Substance: DARBEPOETIN ALFA
     Dosage: 240 MICROGRAM, QWK
     Route: 042
     Dates: start: 20171024, end: 20171219
  86. DIART [Concomitant]
     Active Substance: AZOSEMIDE
     Indication: HYPERTENSION
     Dosage: 30 MG
     Route: 048
  87. ARGAMATE [Concomitant]
     Active Substance: CALCIUM POLYSTYRENE SULFONATE
     Dosage: 150 G
     Route: 048
  88. INSULIN GLARGINE BS [Concomitant]
     Active Substance: INSULIN GLARGINE
     Dosage: 4 DF
     Route: 065
  89. NEXIUM [Concomitant]
     Active Substance: ESOMEPRAZOLE MAGNESIUM
     Indication: GASTRIC ULCER
     Dosage: 20 MG
     Route: 048
  90. PICOSULFATE NA [Concomitant]
     Active Substance: SODIUM PICOSULFATE
     Indication: CONSTIPATION
     Dosage: 75 MG
     Route: 048
     Dates: end: 20161025
  91. GASCON [DIMETICONE] [Concomitant]
     Dosage: 5 ML
     Route: 048
     Dates: end: 20161207
  92. CALONAL [Concomitant]
     Active Substance: ACETAMINOPHEN
     Dosage: 2 DF
     Route: 048
     Dates: end: 20180612
  93. SOLITA?T1 [Concomitant]
     Dosage: 500 ML
     Route: 065
     Dates: start: 20161203, end: 20161205
  94. P?TOL [SUCROFERRIC OXYHYDROXIDE] [Concomitant]
     Active Substance: SUCROFERRIC OXYHYDROXIDE
     Indication: HYPERPHOSPHATAEMIA
     Dosage: 750 MG
     Route: 048
     Dates: end: 20180122
  95. RESTAMIN KOWA [Concomitant]
     Dosage: 50 G
     Route: 061
  96. LULICON [Concomitant]
     Active Substance: LULICONAZOLE
     Indication: TINEA INFECTION
     Dosage: 30 G
     Route: 061
  97. HUMULIN R [Concomitant]
     Active Substance: INSULIN HUMAN
     Dosage: 6 IU
     Route: 065
  98. PENTAGIN [PENTAZOCINE HYDROCHLORIDE] [Concomitant]
     Dosage: 15 MG
     Route: 065
  99. PRIMOBOLAN [METENOLONE ACETATE] [Concomitant]
     Active Substance: METHENOLONE ACETATE
     Dosage: 5 MG, TID
     Route: 048

REACTIONS (16)
  - Upper respiratory tract inflammation [Recovered/Resolved]
  - Pyrexia [Recovering/Resolving]
  - Pharyngitis [Recovered/Resolved]
  - Upper gastrointestinal haemorrhage [Recovering/Resolving]
  - Haemodialysis [Not Recovered/Not Resolved]
  - Upper gastrointestinal haemorrhage [Recovered/Resolved]
  - Nasopharyngitis [Recovering/Resolving]
  - Nasopharyngitis [Recovered/Resolved]
  - Influenza [Recovered/Resolved]
  - Nasopharyngitis [Recovered/Resolved]
  - Gastrointestinal haemorrhage [Recovered/Resolved]
  - Diabetic nephropathy [Not Recovered/Not Resolved]
  - Hypovitaminosis [Recovered/Resolved]
  - Nasopharyngitis [Recovered/Resolved]
  - Upper gastrointestinal haemorrhage [Fatal]
  - Gastrointestinal haemorrhage [Recovering/Resolving]

NARRATIVE: CASE EVENT DATE: 20160125
